FAERS Safety Report 10569980 (Version 1)
Quarter: 2014Q4

REPORT INFORMATION
  Report Type: Spontaneous
  Country: US (occurrence: None)
  Receive Date: 20141106
  Receipt Date: 20141106
  Transmission Date: 20150529
  Serious: No
  Sender: FDA-Public Use
  Company Number: None

PATIENT
  Age: 50 Year
  Sex: Male
  Weight: 136.08 kg

DRUGS (14)
  1. PROZAC [Concomitant]
     Active Substance: FLUOXETINE HYDROCHLORIDE
  2. BUSPAR [Concomitant]
     Active Substance: BUSPIRONE HYDROCHLORIDE
  3. INSULIN [Concomitant]
     Active Substance: INSULIN NOS
  4. LIPITOR [Concomitant]
     Active Substance: ATORVASTATIN CALCIUM
  5. OXYBUTYNIN [Concomitant]
     Active Substance: OXYBUTYNIN
  6. MULTI B VITAMIN [Concomitant]
  7. FUROSIMIDE [Concomitant]
     Active Substance: FUROSEMIDE
  8. VENLAFAXINE [Concomitant]
     Active Substance: VENLAFAXINE HYDROCHLORIDE
  9. CALCIUM [Concomitant]
     Active Substance: CALCIUM
  10. ZOCOR [Suspect]
     Active Substance: SIMVASTATIN
     Indication: LOW DENSITY LIPOPROTEIN INCREASED
     Dosage: 40MG TABLETS, 1 PILL PER DAY, ONCE PER DAY, BY MOUTH
     Route: 048
     Dates: start: 199011, end: 20140605
  11. TERAZOSIN [Concomitant]
     Active Substance: TERAZOSIN\TERAZOSIN HYDROCHLORIDE
  12. METFORMIN [Concomitant]
     Active Substance: METFORMIN HYDROCHLORIDE
  13. ZOCOR [Suspect]
     Active Substance: SIMVASTATIN
     Indication: HIGH DENSITY LIPOPROTEIN DECREASED
     Dosage: 40MG TABLETS, 1 PILL PER DAY, ONCE PER DAY, BY MOUTH
     Route: 048
     Dates: start: 199011, end: 20140605
  14. ATORVASTATIN [Concomitant]
     Active Substance: ATORVASTATIN

REACTIONS (6)
  - Asthenia [None]
  - Abasia [None]
  - Musculoskeletal disorder [None]
  - Colitis [None]
  - Feeling hot [None]
  - Pain in extremity [None]

NARRATIVE: CASE EVENT DATE: 200803
